FAERS Safety Report 10522085 (Version 4)
Quarter: 2015Q1

REPORT INFORMATION
  Report Type: Spontaneous
  Country: US (occurrence: US)
  Receive Date: 20141016
  Receipt Date: 20150311
  Transmission Date: 20150720
  Serious: No
  Sender: FDA-Public Use
  Company Number: US-PFIZER INC-2014281749

PATIENT
  Sex: Female

DRUGS (9)
  1. AMOXICILLIN. [Suspect]
     Active Substance: AMOXICILLIN
     Indication: UPPER RESPIRATORY TRACT INFECTION
     Dosage: UNK UNK, 1X/DAY
     Dates: start: 2011
  2. LEVAQUIN [Suspect]
     Active Substance: LEVOFLOXACIN
     Dosage: UNK
  3. ZITHROMAX [Suspect]
     Active Substance: AZITHROMYCIN DIHYDRATE
     Indication: UPPER RESPIRATORY TRACT INFECTION
     Dosage: UNK, STOPPED AFTER 2 DOSES
     Dates: start: 1999
  4. OMNICEF [Suspect]
     Active Substance: CEFDINIR
     Indication: URINARY TRACT INFECTION
  5. CLINDAMYCIN HCL [Suspect]
     Active Substance: CLINDAMYCIN HYDROCHLORIDE
     Indication: TOOTH INFECTION
     Dosage: UNK, STOPPED AFTER 3 DAYS
     Dates: start: 2010
  6. CIPROFLOXACIN. [Suspect]
     Active Substance: CIPROFLOXACIN
     Indication: URINARY TRACT INFECTION
     Dosage: UNK, STOPPED AFTER 4 DOSES
     Dates: start: 2012
  7. OMNICEF [Suspect]
     Active Substance: CEFDINIR
     Indication: GASTROINTESTINAL INFECTION
     Dosage: UNK, STOPPED AFTER 3 DAYS
     Dates: start: 2014, end: 201404
  8. AMOXICILLIN. [Suspect]
     Active Substance: AMOXICILLIN
     Indication: URINARY TRACT INFECTION
  9. TETRACYCLINE HCL [Suspect]
     Active Substance: TETRACYCLINE HYDROCHLORIDE
     Indication: TOOTH INFECTION
     Dosage: UNK, STOPPED AFTER 3 DAYS
     Dates: start: 1989

REACTIONS (1)
  - Drug hypersensitivity [Recovered/Resolved]
